FAERS Safety Report 14325084 (Version 1)
Quarter: 2017Q4

REPORT INFORMATION
  Report Type: Spontaneous
  Country: US (occurrence: US)
  Receive Date: 20171223
  Receipt Date: 20171223
  Transmission Date: 20180321
  Serious: Yes (Disabling)
  Sender: FDA-Public Use
  Company Number: None

PATIENT
  Sex: Female
  Weight: 81 kg

DRUGS (10)
  1. TYLENOL ARTHRITIS PAIN [Concomitant]
     Active Substance: ACETAMINOPHEN
  2. POTASSIUM [Concomitant]
     Active Substance: POTASSIUM
  3. REPATHA [Suspect]
     Active Substance: EVOLOCUMAB
     Indication: CARDIAC VALVE DISEASE
     Dosage: ?          OTHER FREQUENCY:ONE INJECTION/2 WK;OTHER ROUTE:SURECLICK?
     Dates: start: 20171017, end: 20171031
  4. GARLIQUE [Concomitant]
     Active Substance: GARLIC
  5. REPATHA [Suspect]
     Active Substance: EVOLOCUMAB
     Indication: BLOOD CHOLESTEROL INCREASED
     Dosage: ?          OTHER FREQUENCY:ONE INJECTION/2 WK;OTHER ROUTE:SURECLICK?
     Dates: start: 20171017, end: 20171031
  6. THYME/GINGER TEA [Concomitant]
  7. DULEXOTINE HCL [Concomitant]
  8. LEVOTHYROXINE SODIUM. [Concomitant]
     Active Substance: LEVOTHYROXINE SODIUM
  9. KLONOPIN [Concomitant]
     Active Substance: CLONAZEPAM
  10. COREG [Concomitant]
     Active Substance: CARVEDILOL

REACTIONS (7)
  - Headache [None]
  - Back disorder [None]
  - Intervertebral disc disorder [None]
  - Arthritis [None]
  - Condition aggravated [None]
  - Sinus disorder [None]
  - Pain in extremity [None]

NARRATIVE: CASE EVENT DATE: 20171017
